FAERS Safety Report 5573624-6 (Version None)
Quarter: 2007Q4

REPORT INFORMATION
  Report Type: 
  Country: None (occurrence: None)
  Receive Date: 20071226
  Receipt Date: 20071217
  Transmission Date: 20080405
  Serious: Yes (Hospitalization)
  Sender: FDA-Public Use
  Company Number: US-ELI_LILLY_AND_COMPANY-US200712003568

PATIENT
  Sex: Female
  Weight: 112.93 kg

DRUGS (11)
  1. BYETTA [Suspect]
     Dosage: 5 UG, 2/D
     Route: 058
     Dates: start: 20060101, end: 20070101
  2. BYETTA [Suspect]
     Dosage: 10 UG, 2/D
     Route: 058
     Dates: start: 20070101, end: 20071101
  3. BYETTA [Suspect]
     Dosage: 10 UG, 2/D
     Route: 058
     Dates: start: 20071217
  4. LASIX [Concomitant]
     Dosage: 40 MG, UNKNOWN
  5. METFORMIN HCL [Concomitant]
     Dosage: 1000 MG, 2/D
     Route: 048
  6. IMDUR [Concomitant]
     Dosage: 30 MG, DAILY (1/D)
     Route: 048
  7. ATENOLOL [Concomitant]
     Dosage: 50 MG, 2/D
  8. POTASSIUM CHLORIDE [Concomitant]
     Dosage: UNK, DAILY (1/D)
  9. STOOL SOFTENER [Concomitant]
     Dosage: UNK, UNKNOWN
  10. SPIRONOLACTONE [Concomitant]
     Dosage: UNK, UNKNOWN
  11. NEXIUM [Concomitant]
     Dosage: 40 MG, DAILY (1/D)
     Route: 048

REACTIONS (6)
  - ABDOMINAL PAIN UPPER [None]
  - CHOLELITHIASIS [None]
  - DECREASED APPETITE [None]
  - DYSPHAGIA [None]
  - IRON DEFICIENCY ANAEMIA [None]
  - WEIGHT DECREASED [None]
